FAERS Safety Report 12331435 (Version 1)
Quarter: 2016Q2

REPORT INFORMATION
  Report Type: Spontaneous
  Country: FR (occurrence: FR)
  Receive Date: 20160504
  Receipt Date: 20160504
  Transmission Date: 20160815
  Serious: Yes (Life-Threatening, Hospitalization)
  Sender: FDA-Public Use
  Company Number: FR-FRESENIUS KABI-FK201501256

PATIENT
  Age: 48 Year
  Sex: Male

DRUGS (14)
  1. VOLUVEN [Suspect]
     Active Substance: HYDROXYETHYL STARCH 130/0.4
     Indication: HAEMORRHAGE
  2. CLOTTAFACT [Suspect]
     Active Substance: FIBRINOGEN HUMAN
     Indication: HYPOVOLAEMIC SHOCK
     Dates: start: 20150302
  3. VOLUVEN [Suspect]
     Active Substance: HYDROXYETHYL STARCH 130/0.4
     Indication: HYPOVOLAEMIC SHOCK
     Route: 042
     Dates: start: 20150302, end: 20150302
  4. REMIFENTANIL [Concomitant]
     Active Substance: REMIFENTANIL
  5. GELOFUSINE [Suspect]
     Active Substance: GELATIN\SODIUM CHLORIDE
     Indication: HYPOVOLAEMIC SHOCK
     Route: 042
     Dates: start: 20150302, end: 20150302
  6. TRACRIUM [Concomitant]
     Active Substance: ATRACURIUM BESYLATE
  7. LACTATED RINGERS [Concomitant]
     Active Substance: CALCIUM CHLORIDE\POTASSIUM CHLORIDE\SODIUM CHLORIDE\SODIUM LACTATE
  8. PROPOFOL. [Concomitant]
     Active Substance: PROPOFOL
  9. KETAMINE [Concomitant]
     Active Substance: KETAMINE
  10. CALCIUM [Concomitant]
     Active Substance: CALCIUM
  11. VASOACTIVE AMINES [Concomitant]
  12. EXACYL [Suspect]
     Active Substance: TRANEXAMIC ACID
     Indication: HAEMORRHAGE
     Dates: start: 20150302, end: 20150302
  13. CEPHAZOLINE [Concomitant]
  14. FROZEN PLASMA [Concomitant]

REACTIONS (1)
  - Anaphylactic shock [Recovered/Resolved]

NARRATIVE: CASE EVENT DATE: 20150302
